FAERS Safety Report 6895722-7 (Version None)
Quarter: 2010Q3

REPORT INFORMATION
  Report Type: 
  Country: None (occurrence: None)
  Receive Date: 20100802
  Receipt Date: 20100722
  Transmission Date: 20110219
  Serious: Yes (Hospitalization)
  Sender: FDA-Public Use
  Company Number: DE-AMGEN-US359672

PATIENT
  Sex: Female
  Weight: 58 kg

DRUGS (9)
  1. ENBREL [Suspect]
     Indication: RHEUMATOID ARTHRITIS
     Route: 058
     Dates: start: 20081223, end: 20100101
  2. ENBREL [Suspect]
     Route: 058
     Dates: start: 20100107
  3. CALCIMAGON [Concomitant]
     Indication: OSTEOPOROSIS
     Route: 048
  4. MARCUMAR [Concomitant]
     Dosage: UNKNOWN
     Dates: start: 20100301
  5. RAMIPRIL [Concomitant]
  6. FEMOSTON [Concomitant]
  7. CLOPIDOGREL [Concomitant]
  8. ALENDRONATE SODIUM [Concomitant]
     Indication: OSTEOPOROSIS
     Route: 048
  9. PREDNISOLONE [Concomitant]
     Indication: RHEUMATOID ARTHRITIS
     Route: 048
     Dates: start: 20080401

REACTIONS (3)
  - IMPAIRED HEALING [None]
  - PERIPHERAL ARTERIAL OCCLUSIVE DISEASE [None]
  - VASCULAR GRAFT OCCLUSION [None]
